FAERS Safety Report 9468081 (Version 1)
Quarter: 2013Q3

REPORT INFORMATION
  Report Type: Report from Study
  Country: NL (occurrence: NL)
  Receive Date: 20130821
  Receipt Date: 20130821
  Transmission Date: 20140515
  Serious: Yes (Hospitalization)
  Sender: FDA-Public Use
  Company Number: NL-ELI_LILLY_AND_COMPANY-NL201308004367

PATIENT
  Age: 67 Year
  Sex: Female
  Weight: 71 kg

DRUGS (26)
  1. PEMETREXED [Suspect]
     Indication: NON-SMALL CELL LUNG CANCER
     Dosage: 1750 MG, CYCLICAL
     Route: 042
     Dates: start: 20130717
  2. CISPLATIN [Suspect]
     Indication: NON-SMALL CELL LUNG CANCER
     Dosage: 204 MG, CYCLICAL
     Route: 042
     Dates: start: 20130717
  3. CALCICHEW [Concomitant]
     Indication: OSTEOPOROSIS
     Dosage: UNK
     Dates: start: 20120913
  4. ALENDRONATE [Concomitant]
     Indication: OSTEOPOROSIS
     Dosage: UNK
     Dates: start: 20120913
  5. AMLODIPINE [Concomitant]
     Indication: HYPERTENSION
     Dosage: 5 MG, QD
     Dates: start: 1969
  6. LISINOPRIL [Concomitant]
     Indication: HYPERTENSION
     Dosage: 20 MG, QD
     Dates: start: 1969
  7. VALSARTAN [Concomitant]
     Indication: HYPERTENSION
     Dosage: 80 MG, UNK
     Dates: start: 1969
  8. PRAVASTATIN [Concomitant]
     Indication: HYPERCHOLESTEROLAEMIA
     Dosage: 40 MG, QD
     Dates: start: 20130418, end: 20130715
  9. PRAVASTATIN [Concomitant]
     Dosage: 20 MG, QD
     Dates: start: 20130715
  10. PARACETAMOL [Concomitant]
     Indication: LUNG LOBECTOMY
     Dosage: 500 MG, PRN
     Dates: start: 20130619
  11. PARACETAMOL [Concomitant]
     Indication: CHEST PAIN
     Dosage: 1000 MG, UNK
     Dates: start: 20130717
  12. PARACETAMOL [Concomitant]
     Indication: ARTHRALGIA
  13. FORMOTEROL [Concomitant]
     Indication: CHRONIC OBSTRUCTIVE PULMONARY DISEASE
     Dosage: 12 UG, BID
     Dates: start: 2008
  14. QVAR [Concomitant]
     Indication: CHRONIC OBSTRUCTIVE PULMONARY DISEASE
     Dosage: 100 UG, BID
     Dates: start: 2008
  15. PRAMIPEXOLE [Concomitant]
     Indication: RESTLESS LEGS SYNDROME
     Dosage: 125 MG, UNK
  16. VITAMIN B12 [Concomitant]
     Indication: CHEMOTHERAPY
     Dosage: UNK
     Dates: start: 20130710
  17. FOLIUMZUUR [Concomitant]
     Indication: CHEMOTHERAPY
     Dosage: 5 MG, UNK
  18. TRAMADOL [Concomitant]
     Indication: ABDOMINAL PAIN
     Dosage: 50 MG, BID
     Dates: start: 20130723, end: 20130724
  19. MOVICOLON [Concomitant]
     Indication: CONSTIPATION PROPHYLAXIS
     Dosage: UNK
     Dates: start: 20130723
  20. ONDANSETRON [Concomitant]
     Indication: NAUSEA
     Dosage: 8 MG, UNK
     Route: 042
     Dates: start: 20130723, end: 20130723
  21. DOMPERIDON                         /00498201/ [Concomitant]
     Indication: NAUSEA
     Dosage: UNK
     Dates: start: 20130717, end: 20130723
  22. PRIMPERAN [Concomitant]
     Indication: NAUSEA
     Dosage: 20 MG, UNK
     Route: 054
     Dates: start: 20130723
  23. PRIMPERAN [Concomitant]
     Dosage: 10 MG, UNK
     Route: 048
  24. ACENOCOUMAROL [Concomitant]
     Indication: ATRIAL FIBRILLATION
     Dosage: UNK
     Dates: start: 20130724
  25. SOTALOL [Concomitant]
     Indication: ATRIAL FIBRILLATION
     Dosage: UNK
     Dates: start: 20130724
  26. OXYNORM [Concomitant]
     Indication: ABDOMINAL PAIN
     Dosage: 5 MG, PRN
     Dates: start: 20130724, end: 20130727

REACTIONS (4)
  - Nausea [Recovered/Resolved]
  - Vomiting [Recovered/Resolved]
  - Hyponatraemia [Recovering/Resolving]
  - Inappropriate antidiuretic hormone secretion [Recovering/Resolving]
